FAERS Safety Report 11274265 (Version 2)
Quarter: 2015Q3

REPORT INFORMATION
  Report Type: Spontaneous
  Country: CN (occurrence: CN)
  Receive Date: 20150715
  Receipt Date: 20150716
  Transmission Date: 20151125
  Serious: Yes (Hospitalization, Other)
  Sender: FDA-Public Use
  Company Number: CN-ELI_LILLY_AND_COMPANY-CN201507004727

PATIENT
  Age: 50 Year
  Sex: Male

DRUGS (7)
  1. LISPRO [Suspect]
     Active Substance: INSULIN LISPRO
     Indication: PRODUCT USED FOR UNKNOWN INDICATION
     Dosage: 16 IU, EACH MORNING
     Route: 065
     Dates: end: 20140225
  2. LISPRO [Suspect]
     Active Substance: INSULIN LISPRO
     Dosage: 6 IU, EACH MORNING
     Route: 065
  3. LISPRO [Suspect]
     Active Substance: INSULIN LISPRO
     Dosage: 8 IU, EACH EVENING
     Route: 065
     Dates: start: 20140226, end: 20140228
  4. LISPRO [Suspect]
     Active Substance: INSULIN LISPRO
     Dosage: 6 IU, EACH EVENING
     Route: 065
     Dates: start: 20140301
  5. LISPRO [Suspect]
     Active Substance: INSULIN LISPRO
     Dosage: 12 IU, EACH MORNING
     Route: 065
     Dates: start: 20140226
  6. LISPRO [Suspect]
     Active Substance: INSULIN LISPRO
     Dosage: 16 IU, EACH EVENING
     Route: 065
     Dates: end: 20140225
  7. LISPRO [Suspect]
     Active Substance: INSULIN LISPRO
     Dosage: 4 IU, EACH EVENING
     Route: 065

REACTIONS (15)
  - Tinnitus [Recovered/Resolved]
  - Sinus tachycardia [Recovered/Resolved]
  - Hyperhidrosis [Recovered/Resolved]
  - Dizziness [Recovered/Resolved]
  - Hepatic steatosis [Recovered/Resolved]
  - Hypoglycaemia [Recovered/Resolved]
  - Weight decreased [Recovered/Resolved]
  - Dry mouth [Recovered/Resolved]
  - Blood pressure increased [Recovered/Resolved]
  - Abdominal pain [Recovered/Resolved]
  - Vision blurred [Recovered/Resolved]
  - Hypoaesthesia [Recovered/Resolved]
  - Arthralgia [Recovered/Resolved]
  - Polydipsia [Recovered/Resolved]
  - Nocturia [Recovered/Resolved]
